FAERS Safety Report 7737290-3 (Version None)
Quarter: 2011Q3

REPORT INFORMATION
  Report Type: 
  Country: None (occurrence: None)
  Receive Date: 20110902
  Receipt Date: 20110819
  Transmission Date: 20111222
  Serious: Yes (Other)
  Sender: FDA-Public Use
  Company Number: 2011GB0242

PATIENT
  Sex: Female

DRUGS (1)
  1. KINERET [Suspect]

REACTIONS (3)
  - STILLBIRTH [None]
  - ACCIDENTAL EXPOSURE [None]
  - MATERNAL EXPOSURE DURING PREGNANCY [None]
